FAERS Safety Report 4523299-X (Version None)
Quarter: 2004Q4

REPORT INFORMATION
  Report Type: 
  Country: None (occurrence: None)
  Receive Date: 20041208
  Receipt Date: 20041201
  Transmission Date: 20050328
  Serious: Yes (Life-Threatening)
  Sender: FDA-Public Use
  Company Number: 2004AP05983

PATIENT
  Age: 94 Year
  Sex: Female

DRUGS (2)
  1. CARBOCAIN [Suspect]
     Indication: LOCAL ANAESTHESIA
     Dosage: 5 ML  IT
     Route: 037
     Dates: start: 20041122, end: 20041122
  2. CARBOCAIN [Suspect]
     Indication: LOCAL ANAESTHESIA
     Dosage: 20 ML IT
     Route: 037
     Dates: start: 20041122, end: 20041122

REACTIONS (6)
  - ANAESTHETIC COMPLICATION [None]
  - BLOOD PRESSURE SYSTOLIC DECREASED [None]
  - COMA [None]
  - MEDICATION ERROR [None]
  - RESPIRATORY FAILURE [None]
  - SHOCK [None]
